FAERS Safety Report 11624043 (Version 2)
Quarter: 2016Q3

REPORT INFORMATION
  Report Type: Spontaneous
  Country: US (occurrence: US)
  Receive Date: 20151013
  Receipt Date: 20160705
  Transmission Date: 20161109
  Serious: Yes (Other)
  Sender: FDA-Public Use
  Company Number: US-JNJFOC-20150919686

PATIENT
  Sex: Male

DRUGS (4)
  1. INVEGA [Suspect]
     Active Substance: PALIPERIDONE
     Indication: ATTENTION DEFICIT/HYPERACTIVITY DISORDER
     Route: 048
     Dates: start: 2007, end: 2008
  2. RISPERDAL [Suspect]
     Active Substance: RISPERIDONE
     Indication: BIPOLAR DISORDER
     Route: 048
     Dates: start: 2003, end: 2008
  3. RISPERDAL [Suspect]
     Active Substance: RISPERIDONE
     Indication: ATTENTION DEFICIT/HYPERACTIVITY DISORDER
     Route: 048
     Dates: start: 2003, end: 2008
  4. INVEGA [Suspect]
     Active Substance: PALIPERIDONE
     Indication: BIPOLAR DISORDER
     Route: 048
     Dates: start: 2007, end: 2008

REACTIONS (3)
  - Abnormal weight gain [Unknown]
  - Hyperprolactinaemia [Unknown]
  - Gynaecomastia [Unknown]

NARRATIVE: CASE EVENT DATE: 2003
